FAERS Safety Report 19492700 (Version 2)
Quarter: 2021Q3

REPORT INFORMATION
  Report Type: Spontaneous
  Country: US (occurrence: US)
  Receive Date: 20210705
  Receipt Date: 20210824
  Transmission Date: 20211014
  Serious: Yes (Other)
  Sender: FDA-Public Use
  Company Number: US-JNJFOC-20210659771

PATIENT
  Age: 5 Decade
  Sex: Female

DRUGS (1)
  1. ELMIRON [Suspect]
     Active Substance: PENTOSAN POLYSULFATE SODIUM
     Indication: CYSTITIS INTERSTITIAL
     Dosage: DOSAGE IS UNKNOWN AT THIS TIME, 3 PILLS A DAY
     Route: 048
     Dates: start: 2011, end: 2015

REACTIONS (3)
  - Vision blurred [Unknown]
  - Visual impairment [Unknown]
  - Delayed dark adaptation [Unknown]

NARRATIVE: CASE EVENT DATE: 2013
